FAERS Safety Report 16264740 (Version 13)
Quarter: 2020Q2

REPORT INFORMATION
  Report Type: Spontaneous
  Country: MX (occurrence: MX)
  Receive Date: 20190502
  Receipt Date: 20200626
  Transmission Date: 20200713
  Serious: Yes (Other)
  Sender: FDA-Public Use
  Company Number: MX-PFIZER INC-2018256077

PATIENT
  Age: 9 Year
  Sex: Male
  Weight: 52 kg

DRUGS (12)
  1. XYNTHA [Suspect]
     Active Substance: ANTIHEMOPHILIC FACTOR, HUMAN RECOMBINANT RESIDUES 743-1636 DELETED
     Dosage: 1000 IU, EVERY 72 HOURS
     Route: 042
  2. XYNTHA [Suspect]
     Active Substance: ANTIHEMOPHILIC FACTOR, HUMAN RECOMBINANT RESIDUES 743-1636 DELETED
     Dosage: 100 IU, EVERY 72 HOURS
     Route: 042
  3. XYNTHA [Suspect]
     Active Substance: ANTIHEMOPHILIC FACTOR, HUMAN RECOMBINANT RESIDUES 743-1636 DELETED
     Dosage: 1250 IU
     Route: 042
  4. XYNTHA [Suspect]
     Active Substance: ANTIHEMOPHILIC FACTOR, HUMAN RECOMBINANT RESIDUES 743-1636 DELETED
     Dosage: 750 IU, ALTERNATE DAY (EVERY 48 HOURS)
     Route: 042
  5. XYNTHA [Suspect]
     Active Substance: ANTIHEMOPHILIC FACTOR, HUMAN RECOMBINANT RESIDUES 743-1636 DELETED
     Dosage: 1250 IU
     Route: 042
     Dates: start: 20200424, end: 20200424
  6. XYNTHA [Suspect]
     Active Substance: ANTIHEMOPHILIC FACTOR, HUMAN RECOMBINANT RESIDUES 743-1636 DELETED
     Dosage: 750 IU, SINGLE (APPLICATION EXTRA)
     Route: 042
     Dates: start: 20180927, end: 20180927
  7. XYNTHA [Suspect]
     Active Substance: ANTIHEMOPHILIC FACTOR, HUMAN RECOMBINANT RESIDUES 743-1636 DELETED
     Dosage: 1000 IU, EVERY 72 HOURS
     Route: 042
  8. XYNTHA [Suspect]
     Active Substance: ANTIHEMOPHILIC FACTOR, HUMAN RECOMBINANT RESIDUES 743-1636 DELETED
     Indication: FACTOR VIII DEFICIENCY
     Dosage: 1000 IU, 1X/DAY
     Route: 042
  9. XYNTHA [Suspect]
     Active Substance: ANTIHEMOPHILIC FACTOR, HUMAN RECOMBINANT RESIDUES 743-1636 DELETED
     Dosage: 1000 IU, ALTERNATE DAY (EVERY 48 HOURS)
     Route: 042
  10. XYNTHA [Suspect]
     Active Substance: ANTIHEMOPHILIC FACTOR, HUMAN RECOMBINANT RESIDUES 743-1636 DELETED
     Dosage: 1000 IU, SINGLE (EXTRA DOSE APPLICATION)
     Route: 042
     Dates: start: 20200613, end: 20200613
  11. XYNTHA [Suspect]
     Active Substance: ANTIHEMOPHILIC FACTOR, HUMAN RECOMBINANT RESIDUES 743-1636 DELETED
     Dosage: 1000 IU, ALTERNATE DAY (EVERY 48 HOURS)
     Route: 042
     Dates: start: 20200425
  12. XYNTHA [Suspect]
     Active Substance: ANTIHEMOPHILIC FACTOR, HUMAN RECOMBINANT RESIDUES 743-1636 DELETED
     Dosage: 1000 IU, SINGLE (EXTRA DOSE APPLICATION)
     Route: 042
     Dates: start: 20200614, end: 20200614

REACTIONS (17)
  - Haemarthrosis [Recovered/Resolved]
  - Haemarthrosis [Recovering/Resolving]
  - Prescription drug used without a prescription [Unknown]
  - Haemarthrosis [Recovering/Resolving]
  - Fall [Recovering/Resolving]
  - Haemarthrosis [Unknown]
  - Arthritis [Recovering/Resolving]
  - Coccydynia [Recovered/Resolved]
  - Limb injury [Unknown]
  - Erythema [Unknown]
  - Fall [Recovered/Resolved]
  - Haemarthrosis [Unknown]
  - Animal bite [Recovered/Resolved]
  - Pain [Unknown]
  - Haemorrhage [Recovered/Resolved]
  - Fall [Unknown]
  - Haematoma [Recovered/Resolved]

NARRATIVE: CASE EVENT DATE: 20180616
